FAERS Safety Report 20462391 (Version 10)
Quarter: 2025Q2

REPORT INFORMATION
  Report Type: Report from Study
  Country: CA (occurrence: CA)
  Receive Date: 20220211
  Receipt Date: 20250424
  Transmission Date: 20250717
  Serious: Yes (Other)
  Sender: TAKEDA
  Company Number: CA-TAKEDA-2021TUS046709

PATIENT
  Age: 74 Year
  Sex: Female

DRUGS (20)
  1. VEDOLIZUMAB [Suspect]
     Active Substance: VEDOLIZUMAB
     Indication: Crohn^s disease
  2. VEDOLIZUMAB [Suspect]
     Active Substance: VEDOLIZUMAB
  3. VEDOLIZUMAB [Suspect]
     Active Substance: VEDOLIZUMAB
  4. VEDOLIZUMAB [Suspect]
     Active Substance: VEDOLIZUMAB
     Dosage: 300 MILLIGRAM, Q4WEEKS
     Dates: start: 20220426
  5. VEDOLIZUMAB [Suspect]
     Active Substance: VEDOLIZUMAB
     Dosage: 300 MILLIGRAM, Q4WEEKS
  6. VEDOLIZUMAB [Suspect]
     Active Substance: VEDOLIZUMAB
     Dosage: 300 MILLIGRAM, Q4WEEKS
  7. VEDOLIZUMAB [Suspect]
     Active Substance: VEDOLIZUMAB
     Dosage: 300 MILLIGRAM, Q4WEEKS
  8. VEDOLIZUMAB [Suspect]
     Active Substance: VEDOLIZUMAB
     Dosage: 300 MILLIGRAM, Q4WEEKS
  9. HUMIRA [Concomitant]
     Active Substance: ADALIMUMAB
     Dosage: 40 MILLIGRAM, 1/WEEK
     Dates: start: 202012
  10. APIXABAN [Concomitant]
     Active Substance: APIXABAN
  11. BISOPROLOL [Concomitant]
     Active Substance: BISOPROLOL
  12. PERINDOPRIL [Concomitant]
     Active Substance: PERINDOPRIL
  13. PREGABALIN [Concomitant]
     Active Substance: PREGABALIN
  14. ATORVASTATIN [Concomitant]
     Active Substance: ATORVASTATIN
  15. INDAPAMIDE [Concomitant]
     Active Substance: INDAPAMIDE
  16. COLESEVELAM [Concomitant]
     Active Substance: COLESEVELAM
  17. Panto [Concomitant]
  18. MIRTAZAPINE [Concomitant]
     Active Substance: MIRTAZAPINE
  19. AMITRIPTYLINE [Concomitant]
     Active Substance: AMITRIPTYLINE
  20. Accel hyoscine [Concomitant]

REACTIONS (7)
  - Crohn^s disease [Unknown]
  - Abdominal pain lower [Unknown]
  - Burning sensation [Unknown]
  - Peripheral swelling [Unknown]
  - Stomatitis [Unknown]
  - Therapeutic reaction time decreased [Unknown]
  - Off label use [Unknown]

NARRATIVE: CASE EVENT DATE: 20220426
